FAERS Safety Report 6091857-X (Version None)
Quarter: 2009Q1

REPORT INFORMATION
  Report Type: 
  Country: None (occurrence: None)
  Receive Date: 20090225
  Receipt Date: 20080811
  Transmission Date: 20090719
  Serious: No
  Sender: FDA-Public Use
  Company Number: A0742701A

PATIENT
  Age: 45 Year
  Sex: Female

DRUGS (1)
  1. VALTREX [Suspect]
     Indication: GENITAL HERPES
     Dosage: 500MG PER DAY
     Route: 048

REACTIONS (5)
  - ASTHENIA [None]
  - HEADACHE [None]
  - MALAISE [None]
  - NASAL CONGESTION [None]
  - OROPHARYNGEAL PAIN [None]
